FAERS Safety Report 8292190-8 (Version None)
Quarter: 2012Q2

REPORT INFORMATION
  Report Type: 
  Country: None (occurrence: None)
  Receive Date: 20120417
  Receipt Date: 20120412
  Transmission Date: 20120825
  Serious: Yes (Hospitalization, Other)
  Sender: FDA-Public Use
  Company Number: US-PFIZER INC-2012092735

PATIENT
  Sex: Male
  Weight: 136 kg

DRUGS (3)
  1. EFFEXOR XR [Suspect]
     Indication: OBSESSIVE-COMPULSIVE DISORDER
     Dosage: 150 MG,DAILY
     Route: 048
     Dates: end: 20120409
  2. ATENOLOL [Suspect]
     Indication: ATRIAL FIBRILLATION
     Dosage: 100 MG,DAILY
  3. EFFEXOR XR [Suspect]
     Indication: ANXIETY

REACTIONS (5)
  - TINNITUS [None]
  - FEELING ABNORMAL [None]
  - NASOPHARYNGITIS [None]
  - FATIGUE [None]
  - RENAL DISORDER [None]
